FAERS Safety Report 16701893 (Version 1)
Quarter: 2019Q3

REPORT INFORMATION
  Report Type: Spontaneous
  Country: CA (occurrence: CA)
  Receive Date: 20190813
  Receipt Date: 20190813
  Transmission Date: 20191004
  Serious: No
  Sender: FDA-Public Use
  Company Number: None

PATIENT
  Age: 16 Year
  Sex: Male
  Weight: 117 kg

DRUGS (1)
  1. AQUAPHOR [Suspect]
     Active Substance: PETROLATUM
     Route: 061
     Dates: start: 20190804, end: 20190810

REACTIONS (2)
  - Lip dry [None]
  - Skin discolouration [None]

NARRATIVE: CASE EVENT DATE: 20190810
